FAERS Safety Report 13763626 (Version 1)
Quarter: 2017Q3

REPORT INFORMATION
  Report Type: Report from Study
  Country: None (occurrence: DE)
  Receive Date: 20170718
  Receipt Date: 20170718
  Transmission Date: 20171127
  Serious: Yes (Death, Hospitalization)
  Sender: FDA-Public Use
  Company Number: DE-ABBVIE-17P-062-2036367-00

PATIENT
  Sex: Female

DRUGS (2)
  1. DUODOPA [Suspect]
     Active Substance: CARBIDOPA\LEVODOPA
     Dosage: MD 7.4ML / CRD 3.3ML/H / ED 2.5ML
     Route: 050
     Dates: start: 201707
  2. DUODOPA [Suspect]
     Active Substance: CARBIDOPA\LEVODOPA
     Indication: PARKINSON^S DISEASE
     Dosage: MD 7.4ML / CRD NOT REPORTED  / ED 2.5ML
     Route: 050
     Dates: start: 20110204, end: 201707

REACTIONS (5)
  - Weight decreased [Fatal]
  - Decreased appetite [Fatal]
  - Urinary tract infection [Not Recovered/Not Resolved]
  - Psychotic disorder [Not Recovered/Not Resolved]
  - General physical health deterioration [Fatal]
